FAERS Safety Report 9767047 (Version 1)
Quarter: 2013Q4

REPORT INFORMATION
  Report Type: Spontaneous
  Country: US (occurrence: US)
  Receive Date: 20131217
  Receipt Date: 20131217
  Transmission Date: 20140711
  Serious: No
  Sender: FDA-Public Use
  Company Number: US-GLAXOSMITHKLINE-A1037747A

PATIENT
  Age: 50 Year
  Sex: Female

DRUGS (8)
  1. VOTRIENT [Suspect]
     Indication: BLADDER CANCER
     Dosage: 800MG PER DAY
     Route: 048
     Dates: start: 20130719
  2. DILTIAZEM [Concomitant]
  3. PREMARIN [Concomitant]
  4. VITAMIN B12 [Concomitant]
  5. CALTRATE 600 + D [Concomitant]
  6. XANAX [Concomitant]
  7. NEXIUM [Concomitant]
  8. CENTRUM [Concomitant]

REACTIONS (2)
  - Fatigue [Unknown]
  - Nausea [Unknown]
